FAERS Safety Report 6249366-0 (Version None)
Quarter: 2009Q2

REPORT INFORMATION
  Report Type: 
  Country: None (occurrence: None)
  Receive Date: 20090625
  Receipt Date: 20090619
  Transmission Date: 20091009
  Serious: Yes (Death)
  Sender: FDA-Public Use
  Company Number: 2009US002494

PATIENT
  Age: 9 Year
  Sex: Male

DRUGS (9)
  1. AMBISOME [Suspect]
     Indication: FUNGAL INFECTION
     Dosage: 3 MG/KG, UID/QD, IV NOS
     Route: 042
     Dates: start: 20090613, end: 20090613
  2. AMBISOME [Suspect]
     Indication: FUNGAL INFECTION
     Dosage: 3 MG/KG, UID/QD, IV NOS
     Route: 042
     Dates: start: 20090613, end: 20090613
  3. CANCIDAS (CASPOFUNGIN) [Concomitant]
  4. VFEND [Concomitant]
  5. PARACETAMOL [Concomitant]
  6. ACETAMINOPHEN [Concomitant]
  7. POLARAMINE [Concomitant]
  8. RITUXAN [Concomitant]
  9. FOSCARNET [Concomitant]

REACTIONS (4)
  - ACUTE RESPIRATORY DISTRESS SYNDROME [None]
  - HAEMOLYSIS [None]
  - PYREXIA [None]
  - RESPIRATORY ARREST [None]
